FAERS Safety Report 25609322 (Version 1)
Quarter: 2025Q3

REPORT INFORMATION
  Report Type: Spontaneous
  Country: EU (occurrence: EU)
  Receive Date: 20250727
  Receipt Date: 20250727
  Transmission Date: 20251021
  Serious: Yes (Life-Threatening, Hospitalization, Other)
  Sender: MERCK SHARP & DOHME LLC
  Company Number: None

PATIENT
  Age: 77 Year
  Sex: Male

DRUGS (9)
  1. JANUMET [Suspect]
     Active Substance: METFORMIN HYDROCHLORIDE\SITAGLIPTIN PHOSPHATE
     Indication: Type 2 diabetes mellitus
     Route: 048
     Dates: start: 20220517
  2. ENALAPRIL\HYDROCHLOROTHIAZIDE [Suspect]
     Active Substance: ENALAPRIL\HYDROCHLOROTHIAZIDE
     Indication: Hypertension
     Route: 048
     Dates: start: 20150423, end: 20250321
  3. ATOZET 10 MG/20 MG FILM-COATED TABLETS, 30 tablets [Concomitant]
     Dates: start: 20241126
  4. VOLUTSA 6 MG/0.4 MG MODIFIED-RELEASE TABLETS, 30 tablets [Concomitant]
     Dates: start: 20230427
  5. BETMIGA 50mg extended release tablets, 30 tablets [Concomitant]
  6. JARDIANCE 10 MG FILM-COATED TABLETS 30 tablets [Concomitant]
     Dates: start: 20241022
  7. GEMFIBROZILO STADA 900 mg EFG TABLETS, 30 tablets [Concomitant]
     Dates: start: 20230926
  8. OMEPRAZOLE SANDOZ FARMACEUTICA 20 MG ASTRORESISTANT HARD CAPSULES E... [Concomitant]
     Dates: start: 20220125
  9. DECAPEPTYL SEMESTRAL 22.5 MG POWDER AND SOLVENT FOR INJECTABLE EXTE... [Concomitant]
     Dates: start: 20220125

REACTIONS (2)
  - Angioedema [Recovered/Resolved]
  - Drug interaction [Recovered/Resolved]

NARRATIVE: CASE EVENT DATE: 20250321
